FAERS Safety Report 4663977-5 (Version None)
Quarter: 2005Q2

REPORT INFORMATION
  Report Type: 
  Country: None (occurrence: None)
  Receive Date: 20050502
  Receipt Date: 20050324
  Transmission Date: 20051028
  Serious: No
  Sender: FDA-Public Use
  Company Number: 200512511US

PATIENT
  Sex: Female

DRUGS (12)
  1. KETEK [Suspect]
     Indication: BRONCHITIS
     Dosage: 800 MG QD PO
     Route: 048
     Dates: start: 20050217, end: 20050222
  2. NEXIUM [Concomitant]
  3. NORTRIPTYLINE HCL [Concomitant]
  4. TOPAMAX [Concomitant]
  5. VENLAFAXINE (EFFEXOR XR) [Concomitant]
  6. CLONAZEPAM (CLONOPIN) [Concomitant]
  7. VITAMINS NOS [Concomitant]
  8. NAPROSYN [Concomitant]
  9. PARACETAMOL, OXYCODONE HYDROCHLORIDE (PERCOCET) [Concomitant]
  10. CODEINE PHOSPHATE, PARACETAMOL (TYLENOL WITH CODEINE) [Concomitant]
  11. AZITHROMYCIN (ZITHROMAX Z-PACK) [Concomitant]
  12. PROMETHAZINE [Concomitant]

REACTIONS (2)
  - PRURITUS [None]
  - URTICARIA [None]
